FAERS Safety Report 4869392-3 (Version None)
Quarter: 2005Q4

REPORT INFORMATION
  Report Type: 
  Country: None (occurrence: None)
  Receive Date: 20051230
  Receipt Date: 20051005
  Transmission Date: 20060501
  Serious: Yes (Death, Hospitalization)
  Sender: FDA-Public Use
  Company Number: US-MERCK-0510USA04060

PATIENT
  Age: 78 Year
  Sex: Female
  Weight: 70 kg

DRUGS (19)
  1. VIOXX [Suspect]
     Indication: ARTHRITIS
     Route: 048
     Dates: start: 19991109, end: 20011201
  2. HYDROCODONE BITARTRATE [Concomitant]
     Route: 065
  3. DIOVAN [Concomitant]
     Route: 065
  4. ATENOLOL [Concomitant]
     Route: 065
  5. EXELON [Concomitant]
     Route: 065
  6. RISPERDAL [Concomitant]
     Route: 065
  7. PLETAL [Concomitant]
     Route: 065
  8. GASTROINTESTINAL PREPARATIONS (UNSPECIFIED) [Concomitant]
     Route: 065
  9. ALPRAZOLAM [Concomitant]
     Route: 065
  10. RANITIDINE HYDROCHLORIDE [Concomitant]
     Route: 065
  11. PAXIL [Concomitant]
     Route: 065
  12. COUMADIN [Concomitant]
     Route: 065
  13. AMOXICILLIN [Concomitant]
     Route: 065
  14. ZOCOR [Concomitant]
     Route: 065
  15. ALLEGRA [Concomitant]
     Route: 065
  16. CELEXA [Concomitant]
     Route: 065
  17. ZYPREXA [Concomitant]
     Route: 065
  18. PLAVIX [Concomitant]
     Route: 065
  19. ARICEPT [Concomitant]
     Route: 065

REACTIONS (2)
  - DEATH [None]
  - ISCHAEMIC STROKE [None]
